FAERS Safety Report 6200720-2 (Version None)
Quarter: 2009Q2

REPORT INFORMATION
  Report Type: 
  Country: None (occurrence: None)
  Receive Date: 20090522
  Receipt Date: 20090522
  Transmission Date: 20091009
  Serious: Yes (Death, Hospitalization)
  Sender: FDA-Public Use
  Company Number: BR-ASTRAZENECA-2009UW13022

PATIENT
  Age: 84 Year
  Sex: Female

DRUGS (1)
  1. ATACAND HCT [Suspect]
     Indication: HYPERTENSION
     Route: 048
     Dates: start: 20050101

REACTIONS (2)
  - CARDIAC ARREST [None]
  - ILL-DEFINED DISORDER [None]
